FAERS Safety Report 5551788-8 (Version None)
Quarter: 2007Q4

REPORT INFORMATION
  Report Type: 
  Country: None (occurrence: None)
  Receive Date: 20071212
  Receipt Date: 20071210
  Transmission Date: 20080405
  Serious: No
  Sender: FDA-Public Use
  Company Number: US-BOEHRINGER INGELHEIM PHARMACEUTICALS, INC.-2007-BP-19237BP

PATIENT
  Age: 56 Year
  Sex: Female
  Weight: 106 kg

DRUGS (10)
  1. MIRAPEX [Suspect]
     Indication: RESTLESS LEGS SYNDROME
     Route: 048
     Dates: start: 20070629, end: 20070803
  2. HYZAAR [Concomitant]
     Dates: start: 20070101
  3. SINGULAIR [Concomitant]
     Dates: start: 20070101
  4. METOPROLOL [Concomitant]
     Dates: start: 20070101
  5. FLOVENT [Concomitant]
     Dates: start: 20070101
  6. FLUOXETINE [Concomitant]
     Dates: start: 20070101
  7. ALBUTEROL [Concomitant]
     Route: 055
  8. FAMVIR [Concomitant]
     Indication: ORAL HERPES
  9. POTASSIUM CHLORIDE [Concomitant]
     Route: 048
  10. ESTRADIOL [Concomitant]
     Route: 048

REACTIONS (3)
  - HALLUCINATION [None]
  - PARANOIA [None]
  - SLEEP DISORDER [None]
